FAERS Safety Report 15214342 (Version 2)
Quarter: 2018Q4

REPORT INFORMATION
  Report Type: Spontaneous
  Country: US (occurrence: US)
  Receive Date: 20180730
  Receipt Date: 20181130
  Transmission Date: 20190204
  Serious: Yes (Other)
  Sender: FDA-Public Use
  Company Number: US-SA-2018SA201199

PATIENT
  Sex: Female

DRUGS (1)
  1. KAOPECTATE REGULAR STRENGTH PEPPERMINT FLAVOR ANTI DIARRHEAL [Suspect]
     Active Substance: BISMUTH SUBSALICYLATE
     Indication: DIARRHOEA

REACTIONS (1)
  - Deafness [Recovering/Resolving]
